FAERS Safety Report 10997030 (Version 1)
Quarter: 2015Q2

REPORT INFORMATION
  Report Type: Spontaneous
  Country: US (occurrence: None)
  Receive Date: 20150407
  Receipt Date: 20150407
  Transmission Date: 20150821
  Serious: Yes (Hospitalization, Disabling, Other)
  Sender: FDA-Public Use
  Company Number: None

PATIENT
  Age: 21 Year
  Weight: 75.3 kg

DRUGS (3)
  1. LOVENOX [Suspect]
     Active Substance: ENOXAPARIN SODIUM
     Indication: CONTRACEPTION
     Dosage: LOVENOX 0.6, TWICE DAILY, INJECTED ON STOMACH
     Dates: start: 20140908
  2. NEXPLANON [Suspect]
     Active Substance: ETONOGESTREL
  3. LOVENOX [Concomitant]
     Active Substance: ENOXAPARIN SODIUM

REACTIONS (5)
  - Vomiting [None]
  - Eye movement disorder [None]
  - Headache [None]
  - Weight decreased [None]
  - Cerebral thrombosis [None]

NARRATIVE: CASE EVENT DATE: 20140819
